FAERS Safety Report 4704637-1 (Version None)
Quarter: 2005Q2

REPORT INFORMATION
  Report Type: 
  Country: None (occurrence: None)
  Receive Date: 20050630
  Receipt Date: 20050201
  Transmission Date: 20051028
  Serious: Yes (Hospitalization, Disabling)
  Sender: FDA-Public Use
  Company Number: US-MERCK-0502USA00231

PATIENT
  Age: 64 Year
  Sex: Male
  Weight: 90 kg

DRUGS (11)
  1. VIOXX [Suspect]
     Indication: BACK PAIN
     Route: 048
     Dates: start: 20000418, end: 20030901
  2. ADVAIR [Concomitant]
     Route: 065
  3. FLOMAX [Concomitant]
     Route: 065
  4. SEREVENT [Concomitant]
     Route: 065
  5. VENTILAN (ALBUTEROL) [Concomitant]
     Route: 065
  6. ZITHROMAX [Concomitant]
     Route: 065
  7. FENAMIN (PROMETHAZINE) [Concomitant]
     Route: 065
  8. CIPRO [Concomitant]
     Route: 065
  9. HYDROCODONE BITARTRATE + ACETAMINOPHEN [Concomitant]
     Route: 065
  10. MOTRIN [Concomitant]
     Indication: HEADACHE
     Route: 065
     Dates: start: 19960101, end: 20020101
  11. TYLENOL [Concomitant]
     Indication: HEADACHE
     Route: 065
     Dates: start: 19930101, end: 20020101

REACTIONS (3)
  - EMOTIONAL DISTRESS [None]
  - MYOCARDIAL INFARCTION [None]
  - PROSTATE CANCER [None]
